FAERS Safety Report 14158299 (Version 1)
Quarter: 2017Q4

REPORT INFORMATION
  Report Type: Spontaneous
  Country: PT (occurrence: PT)
  Receive Date: 20171103
  Receipt Date: 20171103
  Transmission Date: 20180321
  Serious: Yes (Other)
  Sender: FDA-Public Use
  Company Number: PT-FRESENIUS KABI-FK201709119

PATIENT
  Sex: Female

DRUGS (1)
  1. CLORETO DE POTASSIO 7.5% LABESFAL [Suspect]
     Active Substance: POTASSIUM CHLORIDE
     Indication: PRODUCT USED FOR UNKNOWN INDICATION
     Route: 065

REACTIONS (5)
  - Oedema [Unknown]
  - Anaphylactic reaction [Unknown]
  - Product quality issue [Unknown]
  - Hypotension [Unknown]
  - Laryngeal oedema [Unknown]
